FAERS Safety Report 5683483-9 (Version None)
Quarter: 2008Q1

REPORT INFORMATION
  Report Type: 
  Country: None (occurrence: None)
  Receive Date: 20080326
  Receipt Date: 20080313
  Transmission Date: 20080703
  Serious: Yes (Other)
  Sender: FDA-Public Use
  Company Number: 232503J08USA

PATIENT
  Age: 47 Year
  Sex: Female
  Weight: 90.7194 kg

DRUGS (7)
  1. REBIF [Suspect]
     Indication: MULTIPLE SCLEROSIS
     Dosage: 44 MCG, 3 IN 1 WEEKS, SUBCUTANEOUS
     Route: 058
     Dates: start: 20070313
  2. SYNTHROID [Suspect]
  3. NEURONTIN [Suspect]
     Indication: HYPOAESTHESIA
  4. NEURONTIN [Suspect]
     Indication: PARAESTHESIA
  5. NAPROSYN [Suspect]
  6. CYMBALTA [Suspect]
     Indication: HYPOAESTHESIA
  7. CYMBALTA [Suspect]
     Indication: PARAESTHESIA

REACTIONS (1)
  - BREAST CANCER STAGE I [None]
